FAERS Safety Report 9648845 (Version 2)
Quarter: 2013Q4

REPORT INFORMATION
  Report Type: Spontaneous
  Country: IT (occurrence: IT)
  Receive Date: 20131028
  Receipt Date: 20131219
  Transmission Date: 20140711
  Serious: Yes (Hospitalization)
  Sender: FDA-Public Use
  Company Number: IT-ABBVIE-13P-083-1161942-00

PATIENT
  Age: 36 Year
  Sex: Female

DRUGS (6)
  1. KLACID [Suspect]
     Indication: HELICOBACTER INFECTION
     Route: 048
     Dates: start: 20130726, end: 20130803
  2. FLAGYL [Suspect]
     Indication: HELICOBACTER INFECTION
     Route: 048
     Dates: start: 20130726, end: 20130803
  3. PANTOPAN [Concomitant]
     Indication: PRODUCT USED FOR UNKNOWN INDICATION
     Dates: start: 20130726, end: 20130803
  4. TRUVADA [Concomitant]
     Indication: HIV INFECTION
     Dosage: FORM STRENGTH: 200 MG/245 MG
  5. NORVIR [Concomitant]
     Indication: HIV INFECTION
  6. TELZIR [Concomitant]
     Indication: HIV INFECTION

REACTIONS (1)
  - Erythema [Unknown]
